FAERS Safety Report 5240053-4 (Version None)
Quarter: 2007Q1

REPORT INFORMATION
  Report Type: 
  Country: None (occurrence: None)
  Receive Date: 20070216
  Receipt Date: 20070205
  Transmission Date: 20070707
  Serious: Yes (Death, Hospitalization)
  Sender: FDA-Public Use
  Company Number: BR-PFIZER INC-2007009757

PATIENT
  Sex: Male
  Weight: 82 kg

DRUGS (5)
  1. SU-011,248 [Suspect]
     Indication: METASTATIC RENAL CELL CARCINOMA
     Route: 048
     Dates: start: 20060830, end: 20070203
  2. OMEPRAZOLE [Concomitant]
     Route: 048
     Dates: start: 20061120
  3. CUMADIN [Concomitant]
     Route: 048
  4. TRAMADOL HCL [Concomitant]
     Route: 048
     Dates: start: 20070127
  5. DEFLAZACORT [Concomitant]
     Route: 048
     Dates: start: 20070124

REACTIONS (3)
  - CARDIAC DISORDER [None]
  - DEATH [None]
  - DISEASE PROGRESSION [None]
